FAERS Safety Report 14951022 (Version 2)
Quarter: 2018Q3

REPORT INFORMATION
  Report Type: Report from Study
  Country: US (occurrence: US)
  Receive Date: 20180530
  Receipt Date: 20180705
  Transmission Date: 20181010
  Serious: Yes (Hospitalization, Other)
  Sender: FDA-Public Use
  Company Number: PHEH2018US020231

PATIENT
  Sex: Female
  Weight: 65.9 kg

DRUGS (1)
  1. AFINITOR [Suspect]
     Active Substance: EVEROLIMUS
     Indication: PRODUCT USED FOR UNKNOWN INDICATION
     Dosage: 5 MG, QD
     Route: 048

REACTIONS (8)
  - Pneumonia [Unknown]
  - Cough [Unknown]
  - Dyspnoea [Unknown]
  - Pyrexia [Unknown]
  - Malaise [Unknown]
  - Weight decreased [Unknown]
  - Hypoxia [Unknown]
  - Fatigue [Unknown]
